FAERS Safety Report 24126288 (Version 1)
Quarter: 2024Q3

REPORT INFORMATION
  Report Type: Spontaneous
  Country: US (occurrence: None)
  Receive Date: 20240721
  Receipt Date: 20240721
  Transmission Date: 20241017
  Serious: Yes (Hospitalization, Disabling)
  Sender: Public
  Company Number: None

PATIENT
  Age: 70 Year
  Sex: Female
  Weight: 78.75 kg

DRUGS (12)
  1. ATORVASTATIN [Suspect]
     Active Substance: ATORVASTATIN
     Indication: Blood cholesterol increased
     Dosage: 1 TAB;ET AT BEDTIME ORAL
     Route: 048
     Dates: start: 20180101, end: 20240410
  2. DEVICE [Concomitant]
     Active Substance: DEVICE
  3. TRIAMTERINE HCTZ [Concomitant]
  4. VAKSARTAB [Concomitant]
  5. METFORMIN [Concomitant]
     Active Substance: METFORMIN HYDROCHLORIDE
  6. FLUOXETINE [Concomitant]
     Active Substance: FLUOXETINE HYDROCHLORIDE
  7. IMITREX [Concomitant]
  8. ZETIA [Concomitant]
     Active Substance: EZETIMIBE
  9. PANTOPRAZOLE [Concomitant]
     Active Substance: PANTOPRAZOLE
  10. IRON [Concomitant]
     Active Substance: IRON
  11. METHYLCOBALAMIN [Concomitant]
     Active Substance: METHYLCOBALAMIN
  12. VTD [Concomitant]

REACTIONS (8)
  - Immune-mediated myositis [None]
  - Gait disturbance [None]
  - Walking aid user [None]
  - Loss of personal independence in daily activities [None]
  - Impaired driving ability [None]
  - Inability to afford medication [None]
  - Drug-induced liver injury [None]
  - Type 2 diabetes mellitus [None]

NARRATIVE: CASE EVENT DATE: 20240514
